FAERS Safety Report 6887811-8 (Version None)
Quarter: 2010Q3

REPORT INFORMATION
  Report Type: 
  Country: None (occurrence: None)
  Receive Date: 20100730
  Receipt Date: 20100720
  Transmission Date: 20110219
  Serious: Yes (Hospitalization)
  Sender: FDA-Public Use
  Company Number: US-SANOFI-AVENTIS-2010SA041252

PATIENT
  Age: 7 Month
  Sex: Male

DRUGS (2)
  1. LOVENOX [Suspect]
     Route: 058
  2. HEPARIN [Suspect]
     Route: 065

REACTIONS (5)
  - CARDIAC TAMPONADE [None]
  - EMPYEMA [None]
  - PERICARDIAL HAEMORRHAGE [None]
  - PNEUMOPERICARDIUM [None]
  - PNEUMOTHORAX [None]
